FAERS Safety Report 6756738-4 (Version None)
Quarter: 2010Q2

REPORT INFORMATION
  Report Type: 
  Country: None (occurrence: None)
  Receive Date: 20100603
  Receipt Date: 20100603
  Transmission Date: 20101027
  Serious: Yes (Death, Hospitalization)
  Sender: FDA-Public Use
  Company Number: None

PATIENT
  Sex: Male
  Weight: 66 kg

DRUGS (4)
  1. PREDNISONE [Suspect]
     Dosage: 1080 MG
     Dates: end: 20100426
  2. VINCRISTINE [Suspect]
     Dosage: 6 MG
     Dates: end: 20100422
  3. MERCAPTOPURINE [Suspect]
     Dosage: 4500 MG
     Dates: end: 20100426
  4. METHOTREXATE [Suspect]
     Dosage: 140 MG
     Dates: end: 20100422

REACTIONS (15)
  - ABDOMINAL PAIN [None]
  - ABDOMINAL PAIN UPPER [None]
  - CLOSTRIDIUM TEST POSITIVE [None]
  - COAGULOPATHY [None]
  - DECREASED APPETITE [None]
  - GENERAL PHYSICAL HEALTH DETERIORATION [None]
  - HYPERKALAEMIA [None]
  - HYPOTENSION [None]
  - MEGACOLON [None]
  - ORGAN FAILURE [None]
  - PLEURAL EFFUSION [None]
  - RENAL FAILURE [None]
  - RESPIRATORY DEPRESSION [None]
  - SEPSIS [None]
  - VENTRICULAR FIBRILLATION [None]
